FAERS Safety Report 6501509-7 (Version None)
Quarter: 2009Q4

REPORT INFORMATION
  Report Type: 
  Country: None (occurrence: None)
  Receive Date: 20091215
  Receipt Date: 20091215
  Transmission Date: 20100525
  Serious: Yes (Hospitalization)
  Sender: FDA-Public Use
  Company Number: None

PATIENT
  Sex: Male
  Weight: 89.8122 kg

DRUGS (1)
  1. ULTRAM [Suspect]
     Indication: ANALGESIC THERAPY
     Dosage: 1 PILL DAILY PO
     Route: 048
     Dates: start: 20091023, end: 20091127

REACTIONS (8)
  - ABDOMINAL PAIN UPPER [None]
  - DECREASED APPETITE [None]
  - FEELING ABNORMAL [None]
  - GASTROINTESTINAL PAIN [None]
  - MALAISE [None]
  - NIGHTMARE [None]
  - SUICIDAL IDEATION [None]
  - WITHDRAWAL SYNDROME [None]
